FAERS Safety Report 6766448-5 (Version None)
Quarter: 2010Q2

REPORT INFORMATION
  Report Type: 
  Country: None (occurrence: None)
  Receive Date: 20100611
  Receipt Date: 20100602
  Transmission Date: 20101027
  Serious: Yes (Death)
  Sender: FDA-Public Use
  Company Number: DE-TEVA-236720ISR

PATIENT
  Sex: Female
  Weight: 59 kg

DRUGS (3)
  1. GEMCITABINE HCL [Suspect]
     Indication: ADENOCARCINOMA
     Dosage: = 1264 MG ONCE (ONLY 1ST CYCLE)
     Route: 042
     Dates: start: 20100203, end: 20100203
  2. GEMCITABINE HCL [Suspect]
     Indication: METASTASES TO LIVER
  3. PANCREATIN [Concomitant]
     Indication: PANCREATIC DISORDER
     Dosage: 75.000 IE

REACTIONS (2)
  - FATIGUE [None]
  - GENERAL PHYSICAL HEALTH DETERIORATION [None]
